FAERS Safety Report 12189195 (Version 1)
Quarter: 2016Q1

REPORT INFORMATION
  Report Type: Spontaneous
  Country: GB (occurrence: GB)
  Receive Date: 20160317
  Receipt Date: 20160317
  Transmission Date: 20160526
  Serious: Yes (Hospitalization)
  Sender: FDA-Public Use
  Company Number: GB-TEVA-643565ACC

PATIENT
  Age: 79 Year
  Sex: Female

DRUGS (4)
  1. SYMBICORT [Concomitant]
     Active Substance: BUDESONIDE\FORMOTEROL FUMARATE DIHYDRATE
     Dosage: 4 DOSAGE FORMS DAILY; 4 DOSAGE FORMS=BUDESONIDE 400/FORMOTEROL FUMARATE DIHIDRATE 12
     Route: 055
  2. SALBUTAMOL [Concomitant]
     Active Substance: ALBUTEROL
     Route: 055
  3. TIOTROPIUM [Concomitant]
     Active Substance: TIOTROPIUM
     Dosage: 18 MICROGRAM DAILY;
     Route: 055
  4. LANSOPRAZOLE. [Suspect]
     Active Substance: LANSOPRAZOLE
     Dosage: 30 MILLIGRAM DAILY;
     Route: 048
     Dates: end: 20160223

REACTIONS (3)
  - Hyponatraemia [Recovered/Resolved]
  - Rash [Unknown]
  - Muscular weakness [Unknown]
